FAERS Safety Report 12396615 (Version 3)
Quarter: 2016Q3

REPORT INFORMATION
  Report Type: Spontaneous
  Country: US (occurrence: US)
  Receive Date: 20160524
  Receipt Date: 20160715
  Transmission Date: 20161109
  Serious: Yes (Other)
  Sender: FDA-Public Use
  Company Number: US-SHIRE-US201605979

PATIENT
  Age: 47 Year
  Sex: Male

DRUGS (1)
  1. FIRAZYR [Suspect]
     Active Substance: ICATIBANT ACETATE
     Indication: HEREDITARY ANGIOEDEMA
     Dosage: 30 MG, AS REQ^D
     Route: 058
     Dates: start: 201408

REACTIONS (3)
  - Pharyngeal oedema [Recovered/Resolved]
  - Rotator cuff syndrome [Unknown]
  - Arthritis [Unknown]

NARRATIVE: CASE EVENT DATE: 20160527
